FAERS Safety Report 9519556 (Version 1)
Quarter: 2013Q3

REPORT INFORMATION
  Report Type: Spontaneous
  Country: US (occurrence: US)
  Receive Date: 20130912
  Receipt Date: 20130912
  Transmission Date: 20140515
  Serious: Yes (Other)
  Sender: FDA-Public Use
  Company Number: PHHY2013US097801

PATIENT
  Age: 56 Year
  Sex: Male

DRUGS (1)
  1. 5-FLUOROURACIL [Suspect]
     Indication: RECTAL CANCER STAGE II
     Dosage: 225 MG/M2, FOR 24 HOURS

REACTIONS (6)
  - Cardiotoxicity [Recovered/Resolved]
  - Chest pain [Recovered/Resolved]
  - Chest discomfort [Recovered/Resolved]
  - Dyspnoea [Recovered/Resolved]
  - Hyperhidrosis [Recovered/Resolved]
  - Palpitations [Recovered/Resolved]
